FAERS Safety Report 10364510 (Version 2)
Quarter: 2014Q4

REPORT INFORMATION
  Report Type: Spontaneous
  Country: US (occurrence: None)
  Receive Date: 20140801
  Receipt Date: 20141001
  Transmission Date: 20150528
  Serious: Yes (Disabling, Other)
  Sender: FDA-Public Use
  Company Number: 2014-US-009215

PATIENT
  Age: 44 Year
  Sex: Female
  Weight: 93.4 kg

DRUGS (6)
  1. PROZAC [Suspect]
     Active Substance: FLUOXETINE HYDROCHLORIDE
     Indication: DEPRESSION
     Route: 048
  2. HYDROCODONE ( HYDROCODONE) [Concomitant]
  3. XYREM [Suspect]
     Active Substance: SODIUM OXYBATE
     Indication: NARCOLEPSY
     Route: 048
     Dates: start: 200810, end: 2008
  4. TRAMADOL ( TRAMADOL) [Concomitant]
  5. NAPROXEN ( NAPROXEN) UNKNOWN [Concomitant]
     Active Substance: NAPROXEN
  6. NUVIGIL ( ARMODAFINIL) [Concomitant]

REACTIONS (12)
  - Intentional overdose [None]
  - Memory impairment [None]
  - Mental disorder [None]
  - Fatigue [None]
  - Emotional disorder [None]
  - Sweat gland disorder [None]
  - Confusional state [None]
  - Intentional product misuse [None]
  - Hypophagia [None]
  - Weight decreased [None]
  - Feeling drunk [None]
  - Insomnia [None]

NARRATIVE: CASE EVENT DATE: 201210
